FAERS Safety Report 6928880-6 (Version None)
Quarter: 2010Q3

REPORT INFORMATION
  Report Type: 
  Country: None (occurrence: None)
  Receive Date: 20100809
  Receipt Date: 20091102
  Transmission Date: 20110219
  Serious: No
  Sender: FDA-Public Use
  Company Number: US-001134

PATIENT
  Sex: Female
  Weight: 74.8435 kg

DRUGS (1)
  1. DEGARELIX 80 MG [Suspect]
     Indication: PROSTATE CANCER
     Dosage: 80 MG 1X/MONTH SUBCUTANEOUS
     Route: 058
     Dates: start: 20090911, end: 20090101

REACTIONS (2)
  - INJECTION SITE SWELLING [None]
  - WEIGHT INCREASED [None]
